FAERS Safety Report 16782031 (Version 1)
Quarter: 2019Q3

REPORT INFORMATION
  Report Type: Spontaneous
  Country: AU (occurrence: AU)
  Receive Date: 20190906
  Receipt Date: 20190906
  Transmission Date: 20191005
  Serious: Yes (Other)
  Sender: FDA-Public Use
  Company Number: AU-JNJFOC-20190834444

PATIENT

DRUGS (8)
  1. BETAHISTINE DIHYDROCHLORIDE [Concomitant]
     Active Substance: BETAHISTINE
  2. PANTOPRAZOLE [Concomitant]
     Active Substance: PANTOPRAZOLE
  3. GLICLAZIDE [Concomitant]
     Active Substance: GLICLAZIDE
  4. INVEGA SUSTENNA [Suspect]
     Active Substance: PALIPERIDONE PALMITATE
     Indication: SCHIZOPHRENIA
     Route: 030
  5. THYMINE HYDROCHLORIDE [Concomitant]
  6. EXENATIDE. [Concomitant]
     Active Substance: EXENATIDE
  7. CALCITRIOL. [Concomitant]
     Active Substance: CALCITRIOL
  8. SALBUTAMOL [Concomitant]
     Active Substance: ALBUTEROL

REACTIONS (1)
  - Pancytopenia [Unknown]
